FAERS Safety Report 6135983-5 (Version None)
Quarter: 2009Q1

REPORT INFORMATION
  Report Type: 
  Country: None (occurrence: None)
  Receive Date: 20090329
  Receipt Date: 20081114
  Transmission Date: 20090719
  Serious: No
  Sender: FDA-Public Use
  Company Number: US-BAUSCH-2008BL004842

PATIENT
  Sex: Female

DRUGS (1)
  1. LOTEMAX [Suspect]
     Indication: EYE INFLAMMATION
     Route: 047
     Dates: start: 20080401

REACTIONS (3)
  - IMMUNE SYSTEM DISORDER [None]
  - OCULAR HYPERAEMIA [None]
  - REBOUND EFFECT [None]
